FAERS Safety Report 14480543 (Version 1)
Quarter: 2018Q1

REPORT INFORMATION
  Report Type: Spontaneous
  Country: US (occurrence: US)
  Receive Date: 20180201
  Receipt Date: 20180201
  Transmission Date: 20180509
  Serious: Yes (Hospitalization)
  Sender: FDA-Public Use
  Company Number: None

PATIENT
  Age: 62 Year
  Sex: Male
  Weight: 78.8 kg

DRUGS (1)
  1. REGORAFENIB [Suspect]
     Active Substance: REGORAFENIB
     Indication: RENAL CELL CARCINOMA
     Route: 048

REACTIONS (6)
  - Nausea [None]
  - Hypercalcaemia [None]
  - Constipation [None]
  - Pain [None]
  - Cancer pain [None]
  - Vomiting [None]

NARRATIVE: CASE EVENT DATE: 20180118
